FAERS Safety Report 18410180 (Version 1)
Quarter: 2020Q4

REPORT INFORMATION
  Report Type: Spontaneous
  Country: CN (occurrence: CN)
  Receive Date: 20201021
  Receipt Date: 20201021
  Transmission Date: 20210114
  Serious: Yes (Other)
  Sender: FDA-Public Use
  Company Number: CN-FRESENIUS KABI-FK202010962

PATIENT
  Age: 64 Year
  Sex: Male
  Weight: 70 kg

DRUGS (4)
  1. PIPERACILLIN AND TAZOBACTAM [Concomitant]
     Active Substance: PIPERACILLIN SODIUM\TAZOBACTAM SODIUM
     Indication: PNEUMONIA BACTERIAL
     Dosage: 5G BID
     Route: 041
     Dates: start: 20200924, end: 20200930
  2. SORBITOL/GLYCINE/ALANINE/SERINE/ASPARTIC ACID/CYSTINE/TYROSINE/LEUCINE/METHIONINE/PHENYLALANINE/HIST [Concomitant]
     Indication: MALNUTRITION
     Dosage: 500ML QD
     Route: 041
     Dates: start: 20200924, end: 20200930
  3. TRANEXAMIC ACID. [Concomitant]
     Active Substance: TRANEXAMIC ACID
     Indication: HAEMOPTYSIS
     Dosage: 0.5G BID
     Route: 041
     Dates: start: 20200924, end: 20200930
  4. LIPOVENOES MCT 20% [Suspect]
     Active Substance: EGG PHOSPHOLIPIDS\GLYCERIN\MEDIUM-CHAIN TRIGLYCERIDES\SOYBEAN OIL
     Indication: MALNUTRITION
     Dosage: 250ML QD
     Route: 041
     Dates: start: 20200924, end: 20200924

REACTIONS (3)
  - Temperature intolerance [Recovering/Resolving]
  - Pyrexia [Recovered/Resolved]
  - Chills [Recovering/Resolving]

NARRATIVE: CASE EVENT DATE: 20200924
